FAERS Safety Report 4836835-0 (Version None)
Quarter: 2005Q4

REPORT INFORMATION
  Report Type: 
  Country: None (occurrence: None)
  Receive Date: 20051123
  Receipt Date: 20051116
  Transmission Date: 20060501
  Serious: Yes (Hospitalization, Other)
  Sender: FDA-Public Use
  Company Number: TR-ABBOTT-05P-161-0317943-00

PATIENT
  Age: 70 Year
  Sex: Male

DRUGS (2)
  1. COLCHICINE [Suspect]
     Indication: GOUTY ARTHRITIS
  2. FLUVASTATIN [Interacting]
     Indication: HYPERLIPIDAEMIA

REACTIONS (10)
  - ABDOMINAL PAIN UPPER [None]
  - ASTHENIA [None]
  - DEHYDRATION [None]
  - DRUG INTERACTION [None]
  - DRUG INTERACTION POTENTIATION [None]
  - GOUTY ARTHRITIS [None]
  - NAUSEA [None]
  - PAIN IN EXTREMITY [None]
  - RENAL FAILURE ACUTE [None]
  - RHABDOMYOLYSIS [None]
